FAERS Safety Report 7458240-3 (Version None)
Quarter: 2011Q2

REPORT INFORMATION
  Report Type: 
  Country: None (occurrence: None)
  Receive Date: 20110504
  Receipt Date: 20110425
  Transmission Date: 20111010
  Serious: Yes (Life-Threatening)
  Sender: FDA-Public Use
  Company Number: US-MERCK-1104USA02636

PATIENT
  Age: 66 Year
  Sex: Male
  Weight: 85 kg

DRUGS (6)
  1. DIOVAN [Concomitant]
     Indication: HYPERTENSION
     Route: 048
     Dates: start: 20080212
  2. CIALIS [Concomitant]
     Indication: ERECTILE DYSFUNCTION
     Route: 048
     Dates: start: 20100203
  3. METFORMIN [Concomitant]
     Route: 048
     Dates: start: 20080212
  4. JANUVIA [Suspect]
     Indication: TYPE 2 DIABETES MELLITUS
     Route: 048
     Dates: start: 20110228, end: 20110329
  5. ACTOS [Concomitant]
     Indication: DIABETES MELLITUS
     Route: 048
     Dates: start: 20080212
  6. LIPITOR [Concomitant]
     Indication: BLOOD CHOLESTEROL INCREASED
     Route: 048
     Dates: start: 20080212

REACTIONS (9)
  - PANCREATITIS [None]
  - HEPATOBILIARY SCAN ABNORMAL [None]
  - CHOLELITHIASIS [None]
  - PANCREATIC PSEUDOCYST [None]
  - HEPATOMEGALY [None]
  - LEUKOCYTOSIS [None]
  - HEPATIC CYST [None]
  - ARTERIOSCLEROSIS CORONARY ARTERY [None]
  - RENAL CYST [None]
